FAERS Safety Report 9803086 (Version 1)
Quarter: 2014Q1

REPORT INFORMATION
  Report Type: Spontaneous
  Country: US (occurrence: US)
  Receive Date: 20140108
  Receipt Date: 20140108
  Transmission Date: 20141002
  Serious: No
  Sender: FDA-Public Use
  Company Number: US-BAYER-2014-003060

PATIENT
  Age: 80 Year
  Sex: Female
  Weight: 53.52 kg

DRUGS (2)
  1. ALEVE TABLET [Suspect]
     Indication: HEADACHE
     Dosage: 2 DF, PRN
     Route: 048
  2. ALEVE TABLET [Suspect]
     Indication: ARTHRITIS

REACTIONS (1)
  - Drug ineffective [None]
